FAERS Safety Report 25537642 (Version 3)
Quarter: 2025Q3

REPORT INFORMATION
  Report Type: Spontaneous
  Country: EU (occurrence: EU)
  Receive Date: 20250710
  Receipt Date: 20250723
  Transmission Date: 20251020
  Serious: Yes (Hospitalization, Other)
  Sender: AUROBINDO
  Company Number: EU-SANDOZ-SDZ2025NL042926

PATIENT
  Age: 68 Year
  Sex: Female

DRUGS (22)
  1. IMATINIB MESYLATE [Suspect]
     Active Substance: IMATINIB MESYLATE
     Indication: Gastrointestinal stromal tumour
     Dosage: 400 MILLIGRAM, ONCE A DAY (400 MG, QD)
     Route: 065
     Dates: start: 20230315
  2. IMATINIB MESYLATE [Suspect]
     Active Substance: IMATINIB MESYLATE
     Dosage: 100 MILLIGRAM, ONCE A DAY (100 MG, QD)
     Route: 065
     Dates: start: 20230925
  3. IMATINIB MESYLATE [Suspect]
     Active Substance: IMATINIB MESYLATE
     Dosage: 200 MILLIGRAM, ONCE A DAY (200 MG, QD)
     Route: 065
     Dates: start: 20240605
  4. IMATINIB MESYLATE [Suspect]
     Active Substance: IMATINIB MESYLATE
     Dosage: 300 MILLIGRAM, ONCE A DAY (300 MG, QD)
     Route: 065
     Dates: start: 20240606
  5. IMATINIB MESYLATE [Suspect]
     Active Substance: IMATINIB MESYLATE
     Dosage: 200 MILLIGRAM, ONCE A DAY (200 MG, QD)
     Route: 065
     Dates: start: 20240609
  6. SUNITINIB [Suspect]
     Active Substance: SUNITINIB
     Indication: Gastrointestinal stromal tumour
     Route: 065
     Dates: start: 20231108, end: 20240515
  7. IMATINIB [Suspect]
     Active Substance: IMATINIB
     Indication: Gastrointestinal stromal tumour
     Dosage: 1 MILLIGRAM, ONCE A DAY
     Route: 048
     Dates: start: 20240422
  8. IMATINIB [Suspect]
     Active Substance: IMATINIB
     Dosage: 3 MILLIGRAM, ONCE A DAY
     Route: 048
     Dates: start: 20240429
  9. IMATINIB [Suspect]
     Active Substance: IMATINIB
     Dosage: 10 MILLIGRAM, ONCE A DAY
     Route: 048
     Dates: start: 20240506
  10. IMATINIB [Suspect]
     Active Substance: IMATINIB
     Dosage: 100 MILLIGRAM, ONCE A DAY
     Route: 048
     Dates: start: 20240528
  11. IMATINIB [Suspect]
     Active Substance: IMATINIB
     Dosage: 300 MILLIGRAM, ONCE A DAY
     Route: 048
     Dates: start: 20240603, end: 20240603
  12. IMATINIB [Suspect]
     Active Substance: IMATINIB
     Dosage: 100 MILLIGRAM, ONCE A DAY
     Route: 048
     Dates: start: 20240604, end: 20240604
  13. IMATINIB [Suspect]
     Active Substance: IMATINIB
     Dosage: 200 MILLIGRAM, ONCE A DAY
     Route: 048
     Dates: start: 20240605, end: 20240605
  14. IMATINIB [Suspect]
     Active Substance: IMATINIB
     Dosage: 300 MILLIGRAM, ONCE A DAY
     Route: 048
     Dates: start: 20240606
  15. IMATINIB [Suspect]
     Active Substance: IMATINIB
     Dosage: 200 MILLIGRAM, ONCE A DAY
     Route: 048
     Dates: start: 20240609, end: 20240611
  16. IMATINIB [Suspect]
     Active Substance: IMATINIB
     Indication: Gastrointestinal stromal tumour
     Dosage: 50 MILLIGRAM, ONCE A DAY
     Route: 048
     Dates: start: 20240523
  17. PANTOPRAZOLE [Concomitant]
     Active Substance: PANTOPRAZOLE
     Indication: Prophylaxis
     Route: 065
     Dates: start: 202304
  18. COTRIMOXAZOLE [Concomitant]
     Active Substance: SULFAMETHOXAZOLE\TRIMETHOPRIM
     Indication: Prophylaxis
     Route: 065
     Dates: start: 202304
  19. BETAMETHASONE [Concomitant]
     Active Substance: BETAMETHASONE
     Indication: Skin reaction
     Route: 065
  20. BETAMETHASONE [Concomitant]
     Active Substance: BETAMETHASONE
     Indication: Type IV hypersensitivity reaction
  21. PREDNISOLONE [Concomitant]
     Active Substance: PREDNISOLONE
     Indication: Skin reaction
     Route: 048
  22. PREDNISOLONE [Concomitant]
     Active Substance: PREDNISOLONE
     Indication: Type IV hypersensitivity reaction
     Route: 048

REACTIONS (9)
  - Drug reaction with eosinophilia and systemic symptoms [Recovered/Resolved]
  - Stomatitis [Unknown]
  - Type IV hypersensitivity reaction [Recovered/Resolved]
  - Chills [Recovered/Resolved]
  - Dyspnoea [Recovered/Resolved]
  - Macule [Recovered/Resolved]
  - Erythema [Recovered/Resolved]
  - Dermatitis exfoliative [Recovered/Resolved]
  - Product preparation issue [Unknown]

NARRATIVE: CASE EVENT DATE: 20230415
